FAERS Safety Report 7786779-X (Version None)
Quarter: 2011Q3

REPORT INFORMATION
  Report Type: 
  Country: None (occurrence: None)
  Receive Date: 20110929
  Receipt Date: 20110923
  Transmission Date: 20111222
  Serious: Yes (Hospitalization)
  Sender: FDA-Public Use
  Company Number: US-PFIZER INC-2011228324

PATIENT
  Age: 65 Year
  Sex: Male
  Weight: 86.17 kg

DRUGS (10)
  1. DILANTIN [Suspect]
     Indication: CONVULSION
     Dosage: 200 MG, 2X/DAY
     Route: 048
  2. FUROSEMIDE [Concomitant]
     Dosage: 40 MG,DAILY
  3. SENSIPAR [Concomitant]
     Dosage: 30 MG,DAILY
     Route: 048
  4. METOPROLOL [Concomitant]
     Dosage: 100 MG, 2X/DAY
  5. LISINOPRIL [Concomitant]
     Dosage: 20 MG,DAILY
  6. PROTONIX [Concomitant]
     Dosage: 40 MG,DAILY
  7. PHENOBARBITAL [Concomitant]
     Dosage: 60 MG, 2X/DAY
  8. NIFEDIPINE [Concomitant]
     Dosage: 60 MG, 2X/DAY
  9. PHOSLO [Concomitant]
     Dosage: 667 MG, 3X/DAY
     Route: 048
  10. NEPHROCAPS [Concomitant]
     Dosage: 1 DF, 1X/DAY

REACTIONS (2)
  - ANTICONVULSANT DRUG LEVEL DECREASED [None]
  - HAEMODIALYSIS [None]
